FAERS Safety Report 13342358 (Version 1)
Quarter: 2017Q1

REPORT INFORMATION
  Report Type: Spontaneous
  Country: US (occurrence: US)
  Receive Date: 20170316
  Receipt Date: 20170316
  Transmission Date: 20170428
  Serious: No
  Sender: FDA-Public Use
  Company Number: US-ADAPT PHARMA INC-2017ADP00003

PATIENT
  Age: 57 Year
  Sex: Male
  Weight: 65.76 kg

DRUGS (4)
  1. MORPHINE [Suspect]
     Active Substance: MORPHINE
     Dosage: UNK, UNK
     Route: 065
  2. NARCAN [Suspect]
     Active Substance: NALOXONE HYDROCHLORIDE
     Indication: OVERDOSE
     Dosage: 4 MG, ONCE
     Route: 045
     Dates: start: 20170130, end: 20170130
  3. UNSPECIFIED OTHER MEDICATIONS [Concomitant]
     Active Substance: UNSPECIFIED INGREDIENT
  4. UNSPECIFIED ASTHMA INHALER [Concomitant]

REACTIONS (2)
  - Feeling abnormal [Recovered/Resolved]
  - Unintentional use for unapproved indication [Recovered/Resolved]

NARRATIVE: CASE EVENT DATE: 20170130
